FAERS Safety Report 20238991 (Version 1)
Quarter: 2021Q4

REPORT INFORMATION
  Report Type: Spontaneous
  Country: IT (occurrence: IT)
  Receive Date: 20211228
  Receipt Date: 20211228
  Transmission Date: 20220303
  Serious: Yes (Hospitalization, Other)
  Sender: FDA-Public Use
  Company Number: IT-IGSA-BIG0017125

PATIENT
  Age: 61 Year
  Sex: Male

DRUGS (1)
  1. HUMAN IMMUNOGLOBULIN G [Suspect]
     Active Substance: HUMAN IMMUNOGLOBULIN G
     Indication: Myasthenia gravis
     Dosage: UNK
     Route: 042
     Dates: start: 202106, end: 202106

REACTIONS (8)
  - Cardiac failure [Unknown]
  - Left ventricular dysfunction [Recovered/Resolved]
  - Coronary artery occlusion [Unknown]
  - Pulseless electrical activity [Unknown]
  - Cardiac arrest [Unknown]
  - Ventricular assist device insertion [Recovered/Resolved]
  - Haemothorax [Unknown]
  - Lung assist device therapy [Recovered/Resolved]

NARRATIVE: CASE EVENT DATE: 20210101
